FAERS Safety Report 8791781 (Version 1)
Quarter: 2012Q4

REPORT INFORMATION
  Report Type: 
  Country: PL (occurrence: PL)
  Receive Date: 20120918
  Receipt Date: 20120918
  Transmission Date: 20130627
  Serious: Yes (Other)
  Sender: FDA-Public Use
  Company Number: PL-UCBSA-065707

PATIENT
  Sex: Male

DRUGS (6)
  1. KEPPRA [Suspect]
  2. CARBAMAZEPINE [Concomitant]
  3. VALPROIC ACID [Concomitant]
     Dosage: 2x800
  4. OXCARBAZEPINE [Concomitant]
     Dosage: 2X600
  5. VIGABATRIN [Concomitant]
     Dosage: 2x1000
  6. LAMOTRIGINE [Concomitant]

REACTIONS (3)
  - Convulsion [Unknown]
  - Thrombocytopenia [Recovering/Resolving]
  - Activities of daily living impaired [Unknown]
